FAERS Safety Report 4483380-0 (Version None)
Quarter: 2004Q4

REPORT INFORMATION
  Report Type: 
  Country: None (occurrence: None)
  Receive Date: 20041020
  Receipt Date: 20041012
  Transmission Date: 20050328
  Serious: Yes (Life-Threatening, Other)
  Sender: FDA-Public Use
  Company Number: RGD: 54756/456

PATIENT
  Sex: Female

DRUGS (1)
  1. LEVONELLE (OTC) LEVONORGESTREL COATED TABLET [Suspect]
     Indication: POST COITAL CONTRACEPTION
     Dosage: PER OS

REACTIONS (4)
  - ABORTION SPONTANEOUS [None]
  - ANTEPARTUM HAEMORRHAGE [None]
  - COMPLICATION OF PREGNANCY [None]
  - PREGNANCY AFTER POST COITAL CONTRACEPTION [None]
